FAERS Safety Report 7397264-1 (Version None)
Quarter: 2011Q2

REPORT INFORMATION
  Report Type: 
  Country: None (occurrence: None)
  Receive Date: 20110406
  Receipt Date: 20110324
  Transmission Date: 20111010
  Serious: Yes (Other)
  Sender: FDA-Public Use
  Company Number: JP-BAYER-2011-020353

PATIENT
  Sex: Male
  Weight: 69 kg

DRUGS (6)
  1. MEDICON [Concomitant]
     Dosage: 3 DF, UNK
     Route: 048
     Dates: start: 20101101
  2. MUCODYNE [Concomitant]
     Dosage: 1 DF, UNK
     Route: 048
     Dates: start: 20101101
  3. NEXAVAR [Suspect]
     Indication: HEPATIC NEOPLASM MALIGNANT
     Dosage: 400 MG, QD
     Route: 048
     Dates: start: 20101202, end: 20110302
  4. NEXAVAR [Suspect]
     Dosage: DAILY DOSE 400 MG
     Route: 048
     Dates: start: 20110323
  5. URSO 250 [Concomitant]
     Dosage: 6 DF, UNK
     Route: 048
     Dates: start: 20100701
  6. FAMOTIDINE [Concomitant]
     Dosage: 2 DF, UNK
     Route: 048
     Dates: start: 20100701

REACTIONS (3)
  - HEPATIC FUNCTION ABNORMAL [None]
  - ALANINE AMINOTRANSFERASE INCREASED [None]
  - ASPARTATE AMINOTRANSFERASE INCREASED [None]
